FAERS Safety Report 25788126 (Version 1)
Quarter: 2025Q3

REPORT INFORMATION
  Report Type: Spontaneous
  Country: EU (occurrence: EU)
  Receive Date: 20250910
  Receipt Date: 20250910
  Transmission Date: 20251021
  Serious: Yes (Other)
  Sender: NOVO NORDISK
  Company Number: EU-NOVOPROD-1516369

PATIENT
  Age: 52 Year
  Sex: Female

DRUGS (1)
  1. WEGOVY [Suspect]
     Active Substance: SEMAGLUTIDE
     Indication: Product used for unknown indication

REACTIONS (5)
  - Postmenopausal haemorrhage [Unknown]
  - Increased appetite [Unknown]
  - Weight increased [Unknown]
  - Nausea [Unknown]
  - Vomiting [Unknown]
